FAERS Safety Report 24590523 (Version 1)
Quarter: 2024Q4

REPORT INFORMATION
  Report Type: Report from Study
  Country: GB (occurrence: GB)
  Receive Date: 20241107
  Receipt Date: 20241107
  Transmission Date: 20250115
  Serious: Yes (Other)
  Sender: CELLTRION
  Company Number: GB-CELLTRION INC.-2024GB027191

PATIENT

DRUGS (1)
  1. ADALIMUMAB-AATY [Suspect]
     Active Substance: ADALIMUMAB-AATY
     Indication: Crohn^s disease
     Dosage: 40 MG
     Route: 058
     Dates: start: 202405

REACTIONS (3)
  - Haemorrhagic cyst [Not Recovered/Not Resolved]
  - Infected cyst [Not Recovered/Not Resolved]
  - Impaired healing [Not Recovered/Not Resolved]
